FAERS Safety Report 6703078-5 (Version None)
Quarter: 2010Q2

REPORT INFORMATION
  Report Type: 
  Country: None (occurrence: None)
  Receive Date: 20100427
  Receipt Date: 20100419
  Transmission Date: 20101027
  Serious: Yes (Other)
  Sender: FDA-Public Use
  Company Number: 2010SP022937

PATIENT
  Sex: Male

DRUGS (2)
  1. DESLORATADINE [Suspect]
     Indication: PREGNANCY
     Dosage: TRPL
     Route: 064
     Dates: start: 20090401
  2. PREDNISONE [Suspect]
     Indication: DRUG EXPOSURE DURING PREGNANCY
     Dosage: TRPL
     Route: 064
     Dates: start: 20090401

REACTIONS (3)
  - BRAIN MALFORMATION [None]
  - DILATATION VENTRICULAR [None]
  - MATERNAL DRUGS AFFECTING FOETUS [None]
